FAERS Safety Report 8496856-6 (Version None)
Quarter: 2012Q3

REPORT INFORMATION
  Report Type: 
  Country: None (occurrence: None)
  Receive Date: 20120709
  Receipt Date: 20120627
  Transmission Date: 20120928
  Serious: Yes (Hospitalization)
  Sender: FDA-Public Use
  Company Number: ES-ELI_LILLY_AND_COMPANY-ES201206009161

PATIENT
  Sex: Female
  Weight: 105 kg

DRUGS (10)
  1. COZAAR [Concomitant]
     Indication: CARDIAC DISORDER
     Dosage: 1 DF, QD
     Route: 048
  2. FUROSEMIDE [Concomitant]
     Indication: FLUID RETENTION
     Dosage: (1-1/2-0)
     Route: 048
  3. ASPIRIN [Concomitant]
     Indication: BLOOD DISORDER
     Dosage: 50 MG, QD
     Route: 048
  4. OMEPRAZOLE [Concomitant]
     Indication: PROPHYLAXIS AGAINST GASTROINTESTINAL ULCER
     Dosage: UNK, QD
     Route: 048
  5. LEVOTHROID [Concomitant]
     Indication: THYROID DISORDER
     Dosage: 20 MG, QD
     Route: 048
  6. ADOFEN [Concomitant]
     Indication: ANXIOLYTIC THERAPY
     Dosage: 30 MG, QD
     Route: 048
  7. FORTEO [Suspect]
     Indication: OSTEOPOROSIS
     Dosage: 20 UG, QD
     Route: 058
     Dates: start: 20120427, end: 20120609
  8. LIMOVAN [Concomitant]
     Indication: SLEEP DISORDER
     Dosage: 1 DF, QD
     Route: 048
  9. NAPROXIN                           /00256202/ [Concomitant]
     Indication: ANALGESIC THERAPY
     Dosage: 500 MG, QD
     Route: 048
  10. SIMVASTATIN [Concomitant]
     Indication: BLOOD CHOLESTEROL INCREASED
     Dosage: 20 MG, QD
     Route: 048

REACTIONS (2)
  - RESPIRATORY FAILURE [None]
  - ANGINA PECTORIS [None]
